FAERS Safety Report 5221193-2 (Version None)
Quarter: 2007Q1

REPORT INFORMATION
  Report Type: 
  Country: None (occurrence: None)
  Receive Date: 20061201
  Receipt Date: 20060807
  Transmission Date: 20070707
  Serious: No
  Sender: FDA-Public Use
  Company Number: 2006PV015046

PATIENT
  Age: 49 Year
  Sex: Female

DRUGS (9)
  1. BYETTA [Suspect]
     Indication: DIABETES MELLITUS NON-INSULIN-DEPENDENT
     Dosage: 5 MCG;BID;SC
     Route: 058
     Dates: start: 20060430
  2. GLYBURIDE [Concomitant]
  3. GLUCOPHAGE XR [Concomitant]
  4. AVANDIA [Concomitant]
  5. VITAMINS [Concomitant]
  6. GLUCOSAMINE [Concomitant]
  7. GLUCOPHAGE XL [Concomitant]
  8. MULTIVIT [Concomitant]
  9. .. [Concomitant]

REACTIONS (11)
  - ABDOMINAL DISTENSION [None]
  - ABDOMINAL PAIN UPPER [None]
  - BLOOD GLUCOSE INCREASED [None]
  - CONSTIPATION [None]
  - DECREASED APPETITE [None]
  - DRUG INEFFECTIVE [None]
  - DYSPEPSIA [None]
  - FOOD AVERSION [None]
  - NAUSEA [None]
  - VOMITING [None]
  - WEIGHT DECREASED [None]
